FAERS Safety Report 5760907-X (Version None)
Quarter: 2008Q2

REPORT INFORMATION
  Report Type: 
  Country: None (occurrence: None)
  Receive Date: 20080606
  Receipt Date: 20080606
  Transmission Date: 20081010
  Serious: Yes (Other)
  Sender: FDA-Public Use
  Company Number: None

PATIENT
  Sex: Female

DRUGS (2)
  1. HEPARIN [Suspect]
     Indication: BLOOD DISORDER
     Dosage: 5000 TWICE A A DAY SUBCUTANEOUS
     Route: 058
     Dates: start: 20071201, end: 20080128
  2. HEPARIN [Suspect]
     Indication: THROMBOSIS PROPHYLAXIS
     Dosage: 5000 TWICE A A DAY SUBCUTANEOUS
     Route: 058
     Dates: start: 20071201, end: 20080128

REACTIONS (11)
  - ABORTION SPONTANEOUS [None]
  - DISCOMFORT [None]
  - DRUG EXPOSURE DURING PREGNANCY [None]
  - FEELING ABNORMAL [None]
  - HOT FLUSH [None]
  - HYPOAESTHESIA [None]
  - ILL-DEFINED DISORDER [None]
  - INJECTION SITE IRRITATION [None]
  - MENSTRUATION IRREGULAR [None]
  - PAIN [None]
  - PRURITUS [None]
